FAERS Safety Report 20996322 (Version 2)
Quarter: 2022Q3

REPORT INFORMATION
  Report Type: Report from Study
  Country: US (occurrence: None)
  Receive Date: 20220623
  Receipt Date: 20220713
  Transmission Date: 20221027
  Serious: Yes (Other)
  Sender: FDA-Public Use
  Company Number: US-Merck Healthcare KGaA-9330760

PATIENT
  Age: 55 Year
  Sex: Female
  Weight: 54 kg

DRUGS (4)
  1. REBIF [Suspect]
     Active Substance: INTERFERON BETA-1A
     Indication: Relapsing-remitting multiple sclerosis
     Dosage: REBIF PREFILLED SYRINGE
     Route: 058
     Dates: start: 20080905
  2. REBIF [Suspect]
     Active Substance: INTERFERON BETA-1A
     Dosage: REBIF PREFILLED SYRINGE
     Route: 058
     Dates: start: 2008
  3. HYDROCHLOROTHIAZIDE [Concomitant]
     Active Substance: HYDROCHLOROTHIAZIDE
     Indication: Product used for unknown indication
     Route: 048
  4. ERGOCALCIFEROL [Concomitant]
     Active Substance: ERGOCALCIFEROL
     Indication: Product used for unknown indication
     Route: 048

REACTIONS (3)
  - Intraductal proliferative breast lesion [Recovered/Resolved]
  - Hepatic enzyme increased [Recovered/Resolved]
  - Product administration interrupted [Unknown]

NARRATIVE: CASE EVENT DATE: 20180101
